FAERS Safety Report 4346878-1 (Version None)
Quarter: 2004Q1

REPORT INFORMATION
  Report Type: 
  Country: None (occurrence: None)
  Receive Date: 20040329
  Receipt Date: 20031209
  Transmission Date: 20041129
  Serious: No
  Sender: FDA-Public Use
  Company Number: USA031254331

PATIENT
  Age: 8 Year
  Sex: Male
  Weight: 24 kg

DRUGS (2)
  1. STRATTERA [Suspect]
     Dosage: 10 MG/DAY
     Dates: start: 20031124
  2. RYNATAN [Concomitant]

REACTIONS (6)
  - ABDOMINAL PAIN UPPER [None]
  - ANXIETY [None]
  - INCREASED UPPER AIRWAY SECRETION [None]
  - PHAGOPHOBIA [None]
  - SENSATION OF FOREIGN BODY [None]
  - THROAT IRRITATION [None]
